FAERS Safety Report 24642507 (Version 1)
Quarter: 2024Q4

REPORT INFORMATION
  Report Type: Spontaneous
  Country: US (occurrence: None)
  Receive Date: 20241119
  Receipt Date: 20241119
  Transmission Date: 20250115
  Serious: No
  Sender: Public
  Company Number: None

PATIENT
  Age: 25 Year
  Sex: Female
  Weight: 45.9 kg

DRUGS (4)
  1. VENLAFAXINE HCL [Suspect]
     Active Substance: VENLAFAXINE HYDROCHLORIDE
     Indication: Depression
     Dosage: OTHER QUANTITY : 1 CAPSULE(S);?
     Route: 048
  2. VENLAFAXINE HCL [Suspect]
     Active Substance: VENLAFAXINE HYDROCHLORIDE
     Indication: Anxiety
  3. NURTEC ODT [Concomitant]
     Active Substance: RIMEGEPANT SULFATE
  4. CLARITIN [Concomitant]
     Active Substance: LORATADINE

REACTIONS (25)
  - Night sweats [None]
  - Abnormal dreams [None]
  - Withdrawal syndrome [None]
  - Agitation [None]
  - Anxiety [None]
  - Confusional state [None]
  - Coordination abnormal [None]
  - Diarrhoea [None]
  - Dysphoria [None]
  - Muscle contractions involuntary [None]
  - Fatigue [None]
  - Migraine [None]
  - Hypomania [None]
  - Insomnia [None]
  - Nausea [None]
  - Nervousness [None]
  - Nightmare [None]
  - Feeling abnormal [None]
  - Somnolence [None]
  - Hyperhidrosis [None]
  - Tremor [None]
  - Vertigo [None]
  - Impaired driving ability [None]
  - Vertigo [None]
  - Crying [None]

NARRATIVE: CASE EVENT DATE: 20241118
